FAERS Safety Report 21299723 (Version 1)
Quarter: 2022Q3

REPORT INFORMATION
  Report Type: Report from Study
  Country: US (occurrence: US)
  Receive Date: 20220906
  Receipt Date: 20220906
  Transmission Date: 20221027
  Serious: Yes (Hospitalization)
  Sender: FDA-Public Use
  Company Number: US-UNITED THERAPEUTICS-UNT-2022-020132

PATIENT
  Age: 63 Year
  Sex: Male

DRUGS (3)
  1. TREPROSTINIL SODIUM [Interacting]
     Active Substance: TREPROSTINIL SODIUM
     Indication: Pulmonary arterial hypertension
     Dosage: UNK
     Dates: start: 20220813
  2. TREPROSTINIL SODIUM [Interacting]
     Active Substance: TREPROSTINIL SODIUM
     Dosage: 18 ?G, QID
     Dates: start: 202208
  3. VIAGRA [Interacting]
     Active Substance: SILDENAFIL CITRATE
     Indication: Product used for unknown indication
     Dosage: UNK
     Route: 065
     Dates: end: 202208

REACTIONS (3)
  - Hyperhidrosis [Unknown]
  - Blood pressure decreased [Unknown]
  - Drug interaction [Unknown]

NARRATIVE: CASE EVENT DATE: 20220801
